FAERS Safety Report 7652351-5 (Version None)
Quarter: 2011Q3

REPORT INFORMATION
  Report Type: 
  Country: None (occurrence: None)
  Receive Date: 20110803
  Receipt Date: 20110727
  Transmission Date: 20111222
  Serious: Yes (Hospitalization)
  Sender: FDA-Public Use
  Company Number: US-CEPHALON-2011003949

PATIENT
  Sex: Female

DRUGS (3)
  1. DECADRON [Concomitant]
  2. TRISENOX [Suspect]
     Indication: ACUTE PROMYELOCYTIC LEUKAEMIA
     Route: 041
  3. ZOFRAN [Concomitant]

REACTIONS (3)
  - PANCYTOPENIA [None]
  - MENORRHAGIA [None]
  - ACUTE PROMYELOCYTIC LEUKAEMIA [None]
